FAERS Safety Report 5485648-8 (Version None)
Quarter: 2007Q4

REPORT INFORMATION
  Report Type: 
  Country: None (occurrence: None)
  Receive Date: 20071011
  Receipt Date: 20070926
  Transmission Date: 20080405
  Serious: Yes (Other)
  Sender: FDA-Public Use
  Company Number: GXKR2007NL08361

PATIENT
  Age: 25 Year
  Sex: Female

DRUGS (5)
  1. CITALOPRAM HYDROBROMIDE [Suspect]
     Indication: DEPRESSION
     Dosage: 30 MG, QD, 40 MG QD
  2. CLOZAPINE [Suspect]
     Indication: SCHIZOAFFECTIVE DISORDER
     Dosage: 300 MG, QD, 125 MG, QD
  3. RISPERIDONE [Concomitant]
  4. VALPROIC ACID [Concomitant]
  5. TEMAZEPAM [Concomitant]

REACTIONS (8)
  - ANTIPSYCHOTIC DRUG LEVEL INCREASED [None]
  - DISEASE RECURRENCE [None]
  - DIZZINESS [None]
  - DRUG INTERACTION [None]
  - DRUG TOXICITY [None]
  - DYSPNOEA [None]
  - HALLUCINATIONS, MIXED [None]
  - WEIGHT INCREASED [None]
